FAERS Safety Report 8541843-2 (Version None)
Quarter: 2012Q3

REPORT INFORMATION
  Report Type: 
  Country: None (occurrence: None)
  Receive Date: 20120726
  Receipt Date: 20110914
  Transmission Date: 20120928
  Serious: No
  Sender: FDA-Public Use
  Company Number: US-ASTRAZENECA-2011SE55153

PATIENT
  Age: 62 Year
  Sex: Female
  Weight: 54.4 kg

DRUGS (4)
  1. PREMIUM [Concomitant]
  2. SEROQUEL [Suspect]
     Indication: PARANOIA
     Route: 048
  3. DIAVAND [Concomitant]
  4. LEVOTHYROXINE SODIUM [Concomitant]

REACTIONS (4)
  - AGITATION [None]
  - CONDITION AGGRAVATED [None]
  - OFF LABEL USE [None]
  - WEIGHT INCREASED [None]
